FAERS Safety Report 24162220 (Version 1)
Quarter: 2024Q3

REPORT INFORMATION
  Report Type: Spontaneous
  Country: US (occurrence: US)
  Receive Date: 20240801
  Receipt Date: 20240801
  Transmission Date: 20241016
  Serious: Yes (Other)
  Sender: BRISTOL MYERS SQUIBB
  Company Number: US-BRISTOL-MYERS SQUIBB COMPANY-2024-119010

PATIENT
  Age: 69 Year
  Sex: Female

DRUGS (1)
  1. SPRYCEL [Suspect]
     Active Substance: DASATINIB
     Indication: Product used for unknown indication
     Dosage: DOSE: UNAVAILABLE; FREQ: TAKE 1 TABLET BY MOUTH ONCE DAILY AT THE SAME TIME EACH DAY, WITH ORWITHOUT
     Route: 048

REACTIONS (3)
  - Pulmonary oedema [Unknown]
  - Oxygen saturation decreased [Unknown]
  - Dyspnoea [Unknown]
